FAERS Safety Report 6146233-8 (Version None)
Quarter: 2009Q2

REPORT INFORMATION
  Report Type: 
  Country: None (occurrence: None)
  Receive Date: 20090402
  Receipt Date: 20090402
  Transmission Date: 20091009
  Serious: Yes (Hospitalization)
  Sender: FDA-Public Use
  Company Number: None

PATIENT

DRUGS (1)
  1. GEMCITABINE HCL [Suspect]
     Dosage: 250 MG

REACTIONS (10)
  - ANAEMIA [None]
  - BACTERIA URINE IDENTIFIED [None]
  - CHEST PAIN [None]
  - CHILLS [None]
  - GLUCOSE URINE PRESENT [None]
  - PYELONEPHRITIS [None]
  - PYREXIA [None]
  - RED BLOOD CELLS URINE POSITIVE [None]
  - SINUS TACHYCARDIA [None]
  - URINE KETONE BODY PRESENT [None]
